FAERS Safety Report 9666396 (Version 1)
Quarter: 2013Q4

REPORT INFORMATION
  Report Type: Spontaneous
  Country: US (occurrence: US)
  Receive Date: 20131104
  Receipt Date: 20131104
  Transmission Date: 20140711
  Serious: No
  Sender: FDA-Public Use
  Company Number: US-BIOGENIDEC-2013BI085813

PATIENT
  Sex: Female

DRUGS (7)
  1. TECFIDERA [Suspect]
     Indication: MULTIPLE SCLEROSIS
     Route: 048
     Dates: start: 20130829
  2. AMPYRA [Concomitant]
  3. FISH OIL [Concomitant]
  4. GABAPENTIN [Concomitant]
  5. ADVIL [Concomitant]
  6. VITAMIN E [Concomitant]
  7. VITAMIN D [Concomitant]

REACTIONS (3)
  - Gastrointestinal disorder [Not Recovered/Not Resolved]
  - Nausea [Recovered/Resolved]
  - Diarrhoea [Recovered/Resolved]
